FAERS Safety Report 8133439-1 (Version None)
Quarter: 2012Q1

REPORT INFORMATION
  Report Type: 
  Country: None (occurrence: None)
  Receive Date: 20120213
  Receipt Date: 20120201
  Transmission Date: 20120608
  Serious: Yes (Death, Hospitalization, Other)
  Sender: FDA-Public Use
  Company Number: US-MYLANLABS-2012S1003031

PATIENT
  Sex: Male
  Weight: 67.13 kg

DRUGS (37)
  1. ARICEPT [Concomitant]
  2. PROTONIX [Concomitant]
  3. TRAMADOL HCL [Concomitant]
  4. ACETAMINOPHEN [Concomitant]
  5. ZIOX /01635501/ [Concomitant]
  6. MAGNESIUM OXIDE [Concomitant]
  7. MILK OF MAGNESIA TAB [Concomitant]
  8. NORVASC [Concomitant]
  9. ACTOS [Concomitant]
  10. ASPIRIN [Concomitant]
  11. BUMEX [Concomitant]
  12. COUMADIN [Concomitant]
  13. MAGNESIUM HYDROXIDE TAB [Concomitant]
  14. RISPERDAL [Concomitant]
  15. ZOCOR [Concomitant]
  16. LANTUS [Concomitant]
  17. LEVAQUIN [Concomitant]
  18. MONOPRIL [Concomitant]
  19. NITROGLYCERIN [Concomitant]
  20. CENTRUM [Concomitant]
  21. NOVOLIN 70/30 [Concomitant]
  22. PENICILLIN [Concomitant]
  23. ZINC OXIDE [Concomitant]
  24. DILTIAZEM HCL [Concomitant]
  25. POTASSIUM CHLORIDE [Concomitant]
  26. SENNA S [Concomitant]
  27. ALLOPURINOL [Concomitant]
  28. B-PLEX /06442901/ [Concomitant]
  29. LISINOPRIL [Concomitant]
  30. METOCLOPRAMIDE [Concomitant]
  31. METRONIDAZOLE [Concomitant]
  32. DIGOXIN [Suspect]
     Route: 048
     Dates: start: 20060301
  33. AMBIEN [Concomitant]
  34. MEGACE [Concomitant]
  35. POTASSIUM CHLORIDE [Concomitant]
  36. TESSALON [Concomitant]
  37. TRENTAL [Concomitant]

REACTIONS (61)
  - PULMONARY EMBOLISM [None]
  - AZOTAEMIA [None]
  - CONTUSION [None]
  - FACIAL WASTING [None]
  - MENTAL STATUS CHANGES [None]
  - OPEN REDUCTION OF FRACTURE [None]
  - DEEP VEIN THROMBOSIS [None]
  - DISORIENTATION [None]
  - GASTROINTESTINAL SOUNDS ABNORMAL [None]
  - MUSCULOSKELETAL PAIN [None]
  - EMOTIONAL DISTRESS [None]
  - FEMUR FRACTURE [None]
  - DEATH [None]
  - CARDIAC FAILURE CONGESTIVE [None]
  - DECUBITUS ULCER [None]
  - HYPERKALAEMIA [None]
  - ROAD TRAFFIC ACCIDENT [None]
  - URINARY TRACT INFECTION [None]
  - WEIGHT DECREASED [None]
  - CEREBRAL ATROPHY [None]
  - AGGRESSION [None]
  - BRAIN NATRIURETIC PEPTIDE INCREASED [None]
  - HEART RATE DECREASED [None]
  - RENAL INJURY [None]
  - WHITE BLOOD CELL COUNT INCREASED [None]
  - TOXICITY TO VARIOUS AGENTS [None]
  - CONDITION AGGRAVATED [None]
  - HEPATIC ENZYME DECREASED [None]
  - HYPERTENSION [None]
  - MALNUTRITION [None]
  - MUCOSAL DRYNESS [None]
  - HYPOPHAGIA [None]
  - RENAL FAILURE CHRONIC [None]
  - INJURY [None]
  - BLOOD PRESSURE DECREASED [None]
  - CACHEXIA [None]
  - CARDIOACTIVE DRUG LEVEL INCREASED [None]
  - DYSPNOEA [None]
  - KNEE ARTHROPLASTY [None]
  - MEMORY IMPAIRMENT [None]
  - SKIN TURGOR DECREASED [None]
  - SKIN ULCER [None]
  - CARDIAC DISORDER [None]
  - ECONOMIC PROBLEM [None]
  - INSULIN-REQUIRING TYPE 2 DIABETES MELLITUS [None]
  - ASTHENIA [None]
  - BLOOD THYROID STIMULATING HORMONE INCREASED [None]
  - CHEST DISCOMFORT [None]
  - CONFUSIONAL STATE [None]
  - DEHYDRATION [None]
  - HYPOTENSION [None]
  - ANXIETY [None]
  - CARDIOMYOPATHY [None]
  - DEMENTIA [None]
  - MITRAL VALVE INCOMPETENCE [None]
  - PLEURAL EFFUSION [None]
  - SEPSIS [None]
  - PAIN IN EXTREMITY [None]
  - PARAESTHESIA [None]
  - VERTIGO [None]
  - ILL-DEFINED DISORDER [None]
